FAERS Safety Report 8969850 (Version 1)
Quarter: 2012Q4

REPORT INFORMATION
  Report Type: 
  Country: US (occurrence: US)
  Receive Date: 20121218
  Receipt Date: 20121218
  Transmission Date: 20130627
  Serious: No
  Sender: FDA-Public Use
  Company Number: US-ROXANE LABORATORIES, INC.-2012-RO-02537RO

PATIENT
  Age: 71 Year
  Sex: Female
  Weight: 73 kg

DRUGS (2)
  1. AZATHIOPRINE [Suspect]
     Indication: AUTOIMMUNE HEPATITIS
     Dosage: 100 mg
     Dates: start: 20120918, end: 20121126
  2. PREDNISONE [Concomitant]
     Indication: AUTOIMMUNE HEPATITIS
     Dates: end: 20121119

REACTIONS (3)
  - Diarrhoea [Not Recovered/Not Resolved]
  - Nausea [Not Recovered/Not Resolved]
  - Dehydration [Unknown]
